FAERS Safety Report 4307557-X (Version None)
Quarter: 2004Q1

REPORT INFORMATION
  Report Type: 
  Country: None (occurrence: None)
  Receive Date: 20040227
  Receipt Date: 20040227
  Transmission Date: 20041129
  Serious: Yes (Other)
  Sender: FDA-Public Use
  Company Number: None

PATIENT
  Sex: Male
  Weight: 89.8122 kg

DRUGS (3)
  1. PAXIL [Suspect]
     Indication: ANXIETY
     Dosage: 40 MG PM ORAL
     Route: 048
     Dates: start: 20001027, end: 20040227
  2. PAXIL [Suspect]
     Indication: DEPRESSION
     Dosage: 40 MG PM ORAL
     Route: 048
     Dates: start: 20001027, end: 20040227
  3. PAXIL [Suspect]
     Indication: PANIC ATTACK
     Dosage: 40 MG PM ORAL
     Route: 048
     Dates: start: 20001027, end: 20040227

REACTIONS (13)
  - AFFECT LABILITY [None]
  - AGGRESSION [None]
  - AGITATION [None]
  - DISTURBANCE IN ATTENTION [None]
  - EMOTIONAL DISORDER [None]
  - MALAISE [None]
  - MANIA [None]
  - PARANOIA [None]
  - RESTLESSNESS [None]
  - SUICIDAL IDEATION [None]
  - TACHYCARDIA [None]
  - THINKING ABNORMAL [None]
  - WEIGHT INCREASED [None]
